FAERS Safety Report 7355812-1 (Version None)
Quarter: 2011Q1

REPORT INFORMATION
  Report Type: 
  Country: None (occurrence: None)
  Receive Date: 20110316
  Receipt Date: 20110314
  Transmission Date: 20110831
  Serious: Yes (Other)
  Sender: FDA-Public Use
  Company Number: US-PFIZER INC-2011056448

PATIENT
  Sex: Male

DRUGS (4)
  1. TYLENOL-500 [Concomitant]
     Dosage: UNK
  2. LIPITOR [Concomitant]
     Indication: BLOOD CHOLESTEROL INCREASED
     Dosage: UNK
  3. TRIAZOLAM [Suspect]
     Indication: SLEEP DISORDER
     Dosage: UNK
     Dates: start: 20110101
  4. TRAMADOL [Concomitant]
     Indication: BACK PAIN
     Dosage: 50 MG, 1X/DAY

REACTIONS (2)
  - DRUG INEFFECTIVE [None]
  - DYSKINESIA [None]
